FAERS Safety Report 9254138 (Version 1)
Quarter: 2013Q2

REPORT INFORMATION
  Report Type: Spontaneous
  Country: BE (occurrence: BE)
  Receive Date: 20130425
  Receipt Date: 20130425
  Transmission Date: 20140414
  Serious: Yes (Other)
  Sender: FDA-Public Use
  Company Number: PHHY2013BE040212

PATIENT
  Sex: 0

DRUGS (5)
  1. EVEROLIMUS [Suspect]
     Indication: IMMUNOSUPPRESSION
     Dosage: 1.75 MG, PER DAY (WEEK ZERO)
  2. EVEROLIMUS [Interacting]
     Dosage: 1 MG, PER DAY (WEEK FOUR)
  3. MYCOPHENOLATE MOFETIL [Interacting]
     Indication: IMMUNOSUPPRESSION
     Dosage: UNK
  4. RIBAVIRIN [Concomitant]
     Dosage: 600 MG/DAY (WEEK ZERO)
  5. BOCEPREVIR [Concomitant]
     Dosage: UNK UKN, UNK

REACTIONS (4)
  - Drug interaction [Unknown]
  - Haemoglobin decreased [Unknown]
  - Blood creatinine increased [Unknown]
  - Glomerular filtration rate decreased [Unknown]
